FAERS Safety Report 13636958 (Version 1)
Quarter: 2017Q2

REPORT INFORMATION
  Report Type: Spontaneous
  Country: US (occurrence: US)
  Receive Date: 20170531
  Receipt Date: 20170531
  Transmission Date: 20170830
  Serious: No
  Sender: FDA-Public Use
  Company Number: US-ASTELLAS-792843

PATIENT
  Age: 72 Year
  Sex: Female
  Weight: 53.5 kg

DRUGS (1)
  1. TARCEVA [Suspect]
     Active Substance: ERLOTINIB HYDROCHLORIDE
     Indication: NON-SMALL CELL LUNG CANCER
     Route: 065

REACTIONS (13)
  - Rash pustular [Recovering/Resolving]
  - Diarrhoea [Recovering/Resolving]
  - Tenderness [None]
  - Dizziness [None]
  - Arthritis [Recovering/Resolving]
  - Toxicity to various agents [None]
  - Nausea [None]
  - Vomiting [None]
  - Pruritus [None]
  - Contusion [None]
  - Fatigue [Recovering/Resolving]
  - Asthenia [Not Recovered/Not Resolved]
  - Decreased appetite [None]

NARRATIVE: CASE EVENT DATE: 201105
